FAERS Safety Report 6782291-5 (Version None)
Quarter: 2010Q2

REPORT INFORMATION
  Report Type: 
  Country: None (occurrence: None)
  Receive Date: 20100621
  Receipt Date: 20100606
  Transmission Date: 20101027
  Serious: Yes (Hospitalization)
  Sender: FDA-Public Use
  Company Number: US-RB-004144-10

PATIENT
  Sex: Male

DRUGS (4)
  1. SUBOXONE [Suspect]
     Route: 060
     Dates: start: 20090912
  2. LOVENOX [Concomitant]
     Dosage: 200 MG DAILY
     Route: 065
  3. COUMADIN [Concomitant]
     Dosage: 15 MG DAILY
     Route: 065
  4. TRAZODONE HYDROCHLORIDE [Concomitant]
     Indication: SLEEP DISORDER
     Dosage: 150 MG DAILY
     Route: 065

REACTIONS (9)
  - ABDOMINAL PAIN UPPER [None]
  - DYSPNOEA [None]
  - NAUSEA [None]
  - PAIN [None]
  - PULMONARY EMBOLISM [None]
  - THROMBOSIS [None]
  - TOOTH EROSION [None]
  - TOOTHACHE [None]
  - VOMITING [None]
